APPROVED DRUG PRODUCT: OXYCODONE HYDROCHLORIDE
Active Ingredient: OXYCODONE HYDROCHLORIDE
Strength: 20MG
Dosage Form/Route: TABLET;ORAL
Application: A202662 | Product #005 | TE Code: AB
Applicant: EPIC PHARMA LLC
Approved: Apr 27, 2017 | RLD: No | RS: No | Type: RX